FAERS Safety Report 18364765 (Version 1)
Quarter: 2020Q3

REPORT INFORMATION
  Report Type: Spontaneous
  Country: US (occurrence: US)
  Receive Date: 20200928
  Receipt Date: 20200928
  Transmission Date: 20201103
  Serious: Yes (Other)
  Sender: FDA-Public Use
  Company Number: None

PATIENT
  Age: 6 Decade
  Sex: Male

DRUGS (6)
  1. ANAKINRA [Suspect]
     Active Substance: ANAKINRA
     Route: 058
  2. HYDROXYCHLOROQUINE [Suspect]
     Active Substance: HYDROXYCHLOROQUINE
     Indication: COVID-19
     Route: 048
     Dates: start: 2020
  3. LEVOFLOXACIN. [Suspect]
     Active Substance: LEVOFLOXACIN
     Indication: COVID-19
     Route: 048
     Dates: start: 2020
  4. LINEZOLID. [Suspect]
     Active Substance: LINEZOLID
     Indication: COVID-19
     Dates: start: 2020
  5. PIPERACILLIN\SULBACTAM [Suspect]
     Active Substance: PIPERACILLIN\SULBACTAM
     Indication: COVID-19
     Dates: start: 2020
  6. LOPINAVIR [Suspect]
     Active Substance: LOPINAVIR
     Indication: COVID-19
     Dosage: ?          OTHER DOSE:400/100 MG;?
     Route: 048
     Dates: start: 2020

REACTIONS (4)
  - Product use in unapproved indication [None]
  - Product use issue [None]
  - Acute respiratory distress syndrome [None]
  - Large intestine perforation [None]
